FAERS Safety Report 17370181 (Version 1)
Quarter: 2020Q1

REPORT INFORMATION
  Report Type: Spontaneous
  Country: IN (occurrence: IN)
  Receive Date: 20200204
  Receipt Date: 20200204
  Transmission Date: 20200409
  Serious: Yes (Other)
  Sender: FDA-Public Use
  Company Number: None

PATIENT
  Age: 3 Year
  Sex: Female
  Weight: 16 kg

DRUGS (1)
  1. MONTAIR LC [Suspect]
     Active Substance: LEVOCETIRIZINE DIHYDROCHLORIDE\MONTELUKAST SODIUM
     Indication: RHINITIS ALLERGIC
     Dates: start: 20190901, end: 20200115

REACTIONS (7)
  - Decreased interest [None]
  - Negative thoughts [None]
  - Crying [None]
  - Mental disorder [None]
  - Irritability [None]
  - Aggression [None]
  - Sleep deficit [None]

NARRATIVE: CASE EVENT DATE: 20191225
